FAERS Safety Report 19276507 (Version 1)
Quarter: 2021Q2

REPORT INFORMATION
  Report Type: Spontaneous
  Country: NL (occurrence: NL)
  Receive Date: 20210519
  Receipt Date: 20210519
  Transmission Date: 20210717
  Serious: Yes (Hospitalization)
  Sender: FDA-Public Use
  Company Number: NL-PFIZER INC-2021512538

PATIENT
  Age: 59 Year
  Sex: Female

DRUGS (2)
  1. PALBOCICLIB [Suspect]
     Active Substance: PALBOCICLIB
     Dosage: 125 MG
     Dates: start: 20180403, end: 20180618
  2. FULVESTRANT. [Suspect]
     Active Substance: FULVESTRANT
     Dosage: 500 MG

REACTIONS (6)
  - Intentional product use issue [Unknown]
  - Urine output decreased [Unknown]
  - Vomiting [Unknown]
  - Hypophagia [Unknown]
  - Constipation [Unknown]
  - Abdominal discomfort [Unknown]

NARRATIVE: CASE EVENT DATE: 20180618
